FAERS Safety Report 15122032 (Version 4)
Quarter: 2020Q2

REPORT INFORMATION
  Report Type: Spontaneous
  Country: US (occurrence: BR)
  Receive Date: 20180709
  Receipt Date: 20200601
  Transmission Date: 20200713
  Serious: Yes (Hospitalization, Other)
  Sender: FDA-Public Use
  Company Number: BR-BIOMARINAP-BR-2018-118895

PATIENT
  Age: 47 Year
  Sex: Female
  Weight: 46 kg

DRUGS (4)
  1. CLONAZEPAM. [Concomitant]
     Active Substance: CLONAZEPAM
     Indication: INSOMNIA
     Dosage: UNK
     Dates: start: 2008
  2. ALDURAZYME [Suspect]
     Active Substance: LARONIDASE
     Indication: MUCOPOLYSACCHARIDOSIS I
     Dosage: 20 DOSAGE FORM
     Route: 041
     Dates: start: 2010
  3. ATENOLOL. [Concomitant]
     Active Substance: ATENOLOL
     Indication: HYPERTENSION
     Dosage: UNK
     Dates: start: 2001
  4. MAREVAN [Concomitant]
     Active Substance: WARFARIN SODIUM
     Indication: EMBOLISM VENOUS
     Dosage: UNK
     Dates: start: 2001

REACTIONS (11)
  - Product dose omission [Not Recovered/Not Resolved]
  - Inflammation [Not Recovered/Not Resolved]
  - Pruritus [Not Recovered/Not Resolved]
  - Asthenia [Not Recovered/Not Resolved]
  - Condition aggravated [Not Recovered/Not Resolved]
  - Haemorrhage [Recovered/Resolved]
  - Abdominal pain upper [Not Recovered/Not Resolved]
  - Unevaluable event [Not Recovered/Not Resolved]
  - Hypersensitivity [Not Recovered/Not Resolved]
  - Swelling face [Not Recovered/Not Resolved]
  - Dizziness [Not Recovered/Not Resolved]

NARRATIVE: CASE EVENT DATE: 20180619
